FAERS Safety Report 4836280-8 (Version None)
Quarter: 2005Q4

REPORT INFORMATION
  Report Type: 
  Country: None (occurrence: None)
  Receive Date: 20051123
  Receipt Date: 20051115
  Transmission Date: 20060501
  Serious: Yes (Hospitalization)
  Sender: FDA-Public Use
  Company Number: FR-BRISTOL-MYERS SQUIBB COMPANY-13187851

PATIENT
  Age: 7 Decade
  Sex: Female

DRUGS (2)
  1. GLUCOVANCE [Suspect]
     Indication: DIABETES MELLITUS NON-INSULIN-DEPENDENT
     Route: 048
     Dates: start: 20050901
  2. LEVOTHYROX [Concomitant]
     Route: 048

REACTIONS (3)
  - HEPATITIS [None]
  - MEDICATION ERROR [None]
  - WEIGHT DECREASED [None]
